FAERS Safety Report 11089010 (Version 1)
Quarter: 2015Q2

REPORT INFORMATION
  Report Type: Report from Study
  Country: BR (occurrence: BR)
  Receive Date: 20150504
  Receipt Date: 20150504
  Transmission Date: 20150821
  Serious: Yes (Other)
  Sender: FDA-Public Use
  Company Number: ALCN2014BR007353

PATIENT
  Sex: Female
  Weight: 66 kg

DRUGS (1)
  1. DUOTRAV [BAC] [Suspect]
     Active Substance: TIMOLOL\TRAVOPROST
     Indication: GLAUCOMA
     Dosage: 1 GTT, QD
     Route: 047

REACTIONS (1)
  - Dementia Alzheimer^s type [Not Recovered/Not Resolved]
